FAERS Safety Report 17971909 (Version 2)
Quarter: 2021Q2

REPORT INFORMATION
  Report Type: Report from Study
  Country: GB (occurrence: GB)
  Receive Date: 20200702
  Receipt Date: 20210629
  Transmission Date: 20210717
  Serious: Yes (Death, Life-Threatening, Hospitalization, Other)
  Sender: FDA-Public Use
  Company Number: GB-TEVA-362310USA

PATIENT
  Age: 70 Year
  Sex: Female
  Weight: 94.9 kg

DRUGS (64)
  1. BENDAMUSTINE [Suspect]
     Active Substance: BENDAMUSTINE
     Indication: FOLLICULAR LYMPHOMA
     Dosage: ONCE EVERY FOUR WEEKS
     Route: 042
     Dates: start: 20120614
  2. ONDANSETRON [Concomitant]
     Active Substance: ONDANSETRON
     Indication: NAUSEA
     Dates: start: 20120712, end: 20120715
  3. GENTAMICIN. [Concomitant]
     Active Substance: GENTAMICIN
     Dates: start: 20121227
  4. ETHAMBUTOL [Concomitant]
     Active Substance: ETHAMBUTOL HYDROCHLORIDE
     Indication: TUBERCULOSIS
     Dates: start: 20130116
  5. NORMAL SALINE [Concomitant]
     Active Substance: SODIUM CHLORIDE
     Dates: start: 20121227, end: 20121231
  6. OBINUTUZUMAB. [Suspect]
     Active Substance: OBINUTUZUMAB
     Route: 042
     Dates: start: 20120712
  7. LANSOPRAZOLE. [Concomitant]
     Active Substance: LANSOPRAZOLE
  8. SALINE NEBULIZER [Concomitant]
     Dates: start: 20120808, end: 20120810
  9. CLARITHROMYCIN. [Concomitant]
     Active Substance: CLARITHROMYCIN
     Indication: NEUTROPENIC SEPSIS
     Dates: start: 20121123, end: 20121130
  10. PARACETAMOL [Concomitant]
     Active Substance: ACETAMINOPHEN
     Indication: PAIN
     Dates: start: 20120712
  11. PARACETAMOL [Concomitant]
     Active Substance: ACETAMINOPHEN
     Dates: start: 20121108
  12. HYDROCORTISONE. [Concomitant]
     Active Substance: HYDROCORTISONE
     Indication: BRONCHIECTASIS
     Dates: start: 20130117, end: 20130119
  13. METOCLOPRAMIDE. [Concomitant]
     Active Substance: METOCLOPRAMIDE
     Indication: VOMITING
  14. DOMPERIDONE [Concomitant]
     Active Substance: DOMPERIDONE
     Indication: NAUSEA
     Dates: start: 20120712, end: 2013
  15. CO?AMOXICLAV [Concomitant]
     Active Substance: AMOXICILLIN\CLAVULANATE POTASSIUM
     Indication: BRONCHIECTASIS
     Dates: start: 20121127, end: 20121130
  16. TAZOCIN [Concomitant]
     Active Substance: PIPERACILLIN SODIUM\TAZOBACTAM SODIUM
     Dates: start: 20121227, end: 20121228
  17. GENTAMICIN. [Concomitant]
     Active Substance: GENTAMICIN
     Indication: NEUTROPENIC SEPSIS
     Dates: start: 20120731, end: 20120802
  18. CLARITHROMYCIN. [Concomitant]
     Active Substance: CLARITHROMYCIN
     Indication: PNEUMONIA
     Dates: start: 20121227, end: 20130101
  19. MEROPENEM. [Concomitant]
     Active Substance: MEROPENEM
     Dates: start: 20121228, end: 20130101
  20. SIMVASTATIN. [Concomitant]
     Active Substance: SIMVASTATIN
     Indication: HYPERCHOLESTEROLAEMIA
  21. HYDROCORTISONE. [Concomitant]
     Active Substance: HYDROCORTISONE
     Indication: MUCOSAL INFLAMMATION
     Dates: start: 20121228, end: 20130101
  22. AMBISOME [Concomitant]
     Active Substance: AMPHOTERICIN B
     Dates: start: 20130116
  23. IPRATROPIUM [Concomitant]
     Active Substance: IPRATROPIUM
     Indication: ASTHMA
     Dates: start: 20121130, end: 20121204
  24. ONDANSETRON [Concomitant]
     Active Substance: ONDANSETRON
     Dates: start: 20121108, end: 20121110
  25. PHOSPHATE?SANDOZ [Concomitant]
     Active Substance: SODIUM PHOSPHATE, MONOBASIC, ANHYDROUS
     Indication: BLOOD CALCIUM DECREASED
  26. CLARITHROMYCIN. [Concomitant]
     Active Substance: CLARITHROMYCIN
     Indication: INFECTIVE EXACERBATION OF BRONCHIECTASIS
     Dates: start: 20130112, end: 20130114
  27. ACICLOVIR [Concomitant]
     Active Substance: ACYCLOVIR
     Indication: MOUTH ULCERATION
     Dates: start: 20121228
  28. MEROPENEM. [Concomitant]
     Active Substance: MEROPENEM
     Indication: NEUTROPENIC SEPSIS
     Dates: start: 20120802, end: 20120807
  29. PREDNISOLON [Concomitant]
     Active Substance: PREDNISOLONE
     Dates: start: 20121122, end: 20121208
  30. PREDNISOLON [Concomitant]
     Active Substance: PREDNISOLONE
     Dates: start: 20121228
  31. RIFAMPICIN [Concomitant]
     Active Substance: RIFAMPIN
     Indication: TUBERCULOSIS
     Dates: start: 20130112, end: 20130118
  32. IPRATROPIUM [Concomitant]
     Active Substance: IPRATROPIUM
     Indication: BRONCHIECTASIS
     Dates: start: 20121227
  33. MECYSTEINE HYDROCHLORIDE [Concomitant]
     Active Substance: MECYSTEINE HYDROCHLORIDE
     Indication: PRODUCT USED FOR UNKNOWN INDICATION
  34. CIPROFLOXACIN. [Concomitant]
     Active Substance: CIPROFLOXACIN
     Indication: BRONCHIECTASIS
     Dates: start: 20120808, end: 20120810
  35. FLUCONAZOL [Concomitant]
     Active Substance: FLUCONAZOLE
     Dates: start: 20121227, end: 20130104
  36. PREDNISOLON [Concomitant]
     Active Substance: PREDNISOLONE
     Indication: PREMEDICATION
     Dates: start: 20121108
  37. PARACETAMOL [Concomitant]
     Active Substance: ACETAMINOPHEN
     Indication: PREMEDICATION
     Dates: start: 20120731
  38. PARACETAMOL [Concomitant]
     Active Substance: ACETAMINOPHEN
     Dates: start: 20121227
  39. LIGNOCAINE 1% [Concomitant]
     Indication: MUCOSAL INFLAMMATION
     Dates: start: 20121228, end: 20130101
  40. METOCLOPRAMIDE. [Concomitant]
     Active Substance: METOCLOPRAMIDE
     Indication: NAUSEA
     Dates: start: 20120731, end: 20120808
  41. NORMAL SALINE [Concomitant]
     Active Substance: SODIUM CHLORIDE
     Indication: BLOOD MAGNESIUM DECREASED
     Dates: start: 20121126, end: 20121127
  42. BENDAMUSTINE [Suspect]
     Active Substance: BENDAMUSTINE
     Dosage: ONCE EVERY FOUR WEEKS
     Route: 042
     Dates: start: 20120712
  43. CO?AMOXICLAV [Concomitant]
     Active Substance: AMOXICILLIN\CLAVULANATE POTASSIUM
     Indication: LOWER RESPIRATORY TRACT INFECTION
     Dates: start: 20121029, end: 20121104
  44. PARACETAMOL [Concomitant]
     Active Substance: ACETAMINOPHEN
     Indication: PYREXIA
     Dates: start: 20121011
  45. CLEXANE [Concomitant]
     Active Substance: ENOXAPARIN SODIUM
     Indication: THROMBOSIS PROPHYLAXIS
     Dates: start: 20120731, end: 20120809
  46. HARTMANN^S SOLUTION [Concomitant]
     Active Substance: CALCIUM CHLORIDE\POTASSIUM CHLORIDE\SODIUM CHLORIDE\SODIUM LACTATE
     Indication: SEPSIS
     Dates: start: 20120801
  47. OBINUTUZUMAB. [Suspect]
     Active Substance: OBINUTUZUMAB
     Indication: FOLLICULAR LYMPHOMA
     Route: 042
     Dates: start: 20120614
  48. DICLOFENAC [Concomitant]
     Active Substance: DICLOFENAC
     Indication: PRODUCT USED FOR UNKNOWN INDICATION
  49. MISOPROSTOL. [Concomitant]
     Active Substance: MISOPROSTOL
     Indication: PRODUCT USED FOR UNKNOWN INDICATION
  50. ONDANSETRON [Concomitant]
     Active Substance: ONDANSETRON
     Indication: VOMITING
     Dates: start: 20120801, end: 20120809
  51. SALBUTAMOL [Concomitant]
     Active Substance: ALBUTEROL
     Indication: BRONCHIECTASIS
     Dates: start: 20121227
  52. TAZOCIN [Concomitant]
     Active Substance: PIPERACILLIN SODIUM\TAZOBACTAM SODIUM
     Indication: NEUTROPENIC SEPSIS
     Dates: start: 20120731, end: 20120802
  53. FLUCONAZOL [Concomitant]
     Active Substance: FLUCONAZOLE
     Indication: NEUTROPENIC SEPSIS
     Dates: start: 20120804
  54. PREDNISOLON [Concomitant]
     Active Substance: PREDNISOLONE
     Indication: BRONCHIECTASIS
     Dates: start: 20120712
  55. FUROSEMIDE. [Concomitant]
     Active Substance: FUROSEMIDE
     Indication: FLUID OVERLOAD
     Dates: start: 20130105, end: 20130106
  56. NORMAL SALINE [Concomitant]
     Active Substance: SODIUM CHLORIDE
     Indication: BLOOD POTASSIUM DECREASED
     Dates: start: 20121123, end: 20121126
  57. SERETIDE [Concomitant]
     Active Substance: FLUTICASONE PROPIONATE\SALMETEROL XINAFOATE
     Indication: ASTHMA
  58. AZITHROMYCIN ANHYDROUS. [Concomitant]
     Active Substance: AZITHROMYCIN ANHYDROUS
     Indication: PROPHYLAXIS
  59. PHOSPHATE?SANDOZ [Concomitant]
     Active Substance: SODIUM PHOSPHATE, MONOBASIC, ANHYDROUS
     Indication: BLOOD POTASSIUM DECREASED
     Dates: start: 20121127, end: 20121129
  60. GENTAMICIN. [Concomitant]
     Active Substance: GENTAMICIN
     Dates: start: 20121027, end: 20121028
  61. PYRAZINAMIDE. [Concomitant]
     Active Substance: PYRAZINAMIDE
     Indication: TUBERCULOSIS
     Dates: start: 20130112, end: 20130118
  62. GANCICLOVIR. [Concomitant]
     Active Substance: GANCICLOVIR
     Indication: SEPSIS
     Dates: start: 20130115, end: 20130119
  63. AMBISOME [Concomitant]
     Active Substance: AMPHOTERICIN B
     Indication: PNEUMONIA FUNGAL
     Dates: start: 20120805
  64. NORMAL SALINE [Concomitant]
     Active Substance: SODIUM CHLORIDE
     Indication: DEHYDRATION
     Dates: start: 20120808

REACTIONS (6)
  - Mucosal inflammation [Unknown]
  - Neutropenic sepsis [Not Recovered/Not Resolved]
  - Respiratory tract infection [Recovered/Resolved]
  - Fluid overload [Recovered/Resolved]
  - Pneumonia [Fatal]
  - Pneumonia [Recovered/Resolved]

NARRATIVE: CASE EVENT DATE: 20120731
